FAERS Safety Report 4931684-7 (Version None)
Quarter: 2006Q1

REPORT INFORMATION
  Report Type: 
  Country: None (occurrence: None)
  Receive Date: 20060303
  Receipt Date: 20060117
  Transmission Date: 20060701
  Serious: No
  Sender: FDA-Public Use
  Company Number: US-BRISTOL-MYERS SQUIBB COMPANY-13249404

PATIENT
  Sex: Male
  Weight: 73 kg

DRUGS (3)
  1. ERBITUX [Suspect]
     Route: 042
  2. BENADRYL [Concomitant]
     Indication: PREMEDICATION
     Route: 042
  3. DECADRON SRC [Concomitant]
     Indication: PREMEDICATION
     Route: 042

REACTIONS (1)
  - RASH [None]
